FAERS Safety Report 13442180 (Version 1)
Quarter: 2017Q2

REPORT INFORMATION
  Report Type: Other
  Country: CA (occurrence: CA)
  Receive Date: 20170414
  Receipt Date: 20170414
  Transmission Date: 20170830
  Serious: Yes (Death, Other)
  Sender: FDA-Public Use
  Company Number: CA-APOTEX-2017AP009833

PATIENT
  Age: 32 Year
  Sex: Female

DRUGS (1)
  1. APO-FENTANYL MATRIX [Suspect]
     Active Substance: FENTANYL
     Indication: PRODUCT USED FOR UNKNOWN INDICATION
     Dosage: 50 ?G, UNK
     Route: 045

REACTIONS (6)
  - Overdose [Fatal]
  - Intentional product misuse [Fatal]
  - Drug use disorder [Fatal]
  - Drug diversion [Fatal]
  - Incorrect route of drug administration [Fatal]
  - Death [Fatal]
